FAERS Safety Report 24143570 (Version 1)
Quarter: 2024Q3

REPORT INFORMATION
  Report Type: Spontaneous
  Country: US (occurrence: US)
  Receive Date: 20240727
  Receipt Date: 20240727
  Transmission Date: 20241017
  Serious: No
  Sender: AILEX PHARMACEUTICALS
  Company Number: AP-2024-US-5936

PATIENT
  Age: 73 Year
  Sex: Male

DRUGS (1)
  1. CROMOLYN SODIUM [Suspect]
     Active Substance: CROMOLYN SODIUM
     Route: 048

REACTIONS (4)
  - Product packaging issue [Unknown]
  - Incorrect dose administered [Unknown]
  - No adverse event [Unknown]
  - Product leakage [Unknown]
